FAERS Safety Report 20238976 (Version 1)
Quarter: 2021Q4

REPORT INFORMATION
  Report Type: Spontaneous
  Country: US (occurrence: None)
  Receive Date: 20211227
  Receipt Date: 20211227
  Transmission Date: 20220303
  Serious: Yes (Hospitalization)
  Sender: FDA-Public Use
  Company Number: None

PATIENT
  Age: 78 Year
  Sex: Male
  Weight: 121 kg

DRUGS (1)
  1. PIPERACILLIN SODIUM\TAZOBACTAM SODIUM [Suspect]
     Active Substance: PIPERACILLIN SODIUM\TAZOBACTAM SODIUM
     Indication: Decubitus ulcer
     Dosage: OTHER QUANTITY : 3.375 GM;?FREQUENCY : 3 TIMES A DAY; IV?
     Route: 042
     Dates: start: 20210803, end: 20210803

REACTIONS (3)
  - Anaphylactic reaction [None]
  - Unevaluable event [None]
  - Blood pressure decreased [None]

NARRATIVE: CASE EVENT DATE: 20210803
